FAERS Safety Report 17558713 (Version 1)
Quarter: 2020Q1

REPORT INFORMATION
  Report Type: Spontaneous
  Country: US (occurrence: US)
  Receive Date: 20200311
  Receipt Date: 20200311
  Transmission Date: 20200409
  Serious: No
  Sender: FDA-Public Use
  Company Number: None

PATIENT
  Sex: Female

DRUGS (11)
  1. LOSARTAN POT [Concomitant]
     Active Substance: LOSARTAN POTASSIUM
  2. ONDANSETRON [Concomitant]
     Active Substance: ONDANSETRON
  3. CIPROFLOXACN [Concomitant]
     Active Substance: CIPROFLOXACIN
  4. ENBREL [Suspect]
     Active Substance: ETANERCEPT
     Indication: RHEUMATOID ARTHRITIS
     Route: 058
     Dates: start: 20190530
  5. CEFDINIR. [Concomitant]
     Active Substance: CEFDINIR
  6. CEPHALEXIN. [Concomitant]
     Active Substance: CEPHALEXIN
  7. GENTAMICIN. [Concomitant]
     Active Substance: GENTAMICIN
  8. LEVOTHYROXIN [Concomitant]
     Active Substance: LEVOTHYROXINE
  9. SUCRALFATE. [Concomitant]
     Active Substance: SUCRALFATE
  10. TRAMADOL HCL [Concomitant]
     Active Substance: TRAMADOL HYDROCHLORIDE
  11. CLONAZEPAM. [Concomitant]
     Active Substance: CLONAZEPAM

REACTIONS (2)
  - Condition aggravated [None]
  - Dialysis [None]
